FAERS Safety Report 9507452 (Version 1)
Quarter: 2013Q3

REPORT INFORMATION
  Report Type: Spontaneous
  Country: US (occurrence: None)
  Receive Date: 20130906
  Receipt Date: 20130906
  Transmission Date: 20140515
  Serious: Yes (Hospitalization, Disabling, Other)
  Sender: FDA-Public Use
  Company Number: None

PATIENT
  Age: 55 Year
  Sex: Male
  Weight: 130.18 kg

DRUGS (18)
  1. DBCGOT [Suspect]
     Indication: PAIN
     Dosage: TOPICAL FOUR TIMES DAILY APPLIED TO A SURFACE USUALLY THE SKIN?USED IT 3 TIMES ALL ON 31
     Route: 061
  2. DBCGOT [Suspect]
     Indication: MUSCULOSKELETAL STIFFNESS
     Dosage: TOPICAL FOUR TIMES DAILY APPLIED TO A SURFACE USUALLY THE SKIN?USED IT 3 TIMES ALL ON 31
     Route: 061
  3. HUMALOG MIX [Concomitant]
  4. ASPIRIN [Concomitant]
  5. BYSTOLIC [Concomitant]
  6. OMEPRAZOLE [Concomitant]
  7. MECLIZINE [Concomitant]
  8. LIPITOR [Concomitant]
  9. LASIX [Concomitant]
  10. IBUPROFEN [Concomitant]
  11. LISINOPRIL [Concomitant]
  12. CIPROFLOXACIN [Concomitant]
  13. DIAZEPAM [Concomitant]
  14. ALLOPURINOL [Concomitant]
  15. SODIUM BICARBONATE [Concomitant]
  16. FLECAINIDE ACETATE [Concomitant]
  17. ELIQUIS [Concomitant]
  18. ASPIRIN [Concomitant]

REACTIONS (6)
  - Chest discomfort [None]
  - Agitation [None]
  - Feeling abnormal [None]
  - Aggression [None]
  - Suicidal ideation [None]
  - Atrial fibrillation [None]
